FAERS Safety Report 21279014 (Version 2)
Quarter: 2022Q4

REPORT INFORMATION
  Report Type: Spontaneous
  Country: CA (occurrence: CA)
  Receive Date: 20220901
  Receipt Date: 20221207
  Transmission Date: 20230112
  Serious: Yes (Death, Hospitalization, Other)
  Sender: FDA-Public Use
  Company Number: CA-SAMSUNG BIOEPIS-SB-2022-21443

PATIENT
  Age: 67 Year
  Sex: Male
  Weight: 70 kg

DRUGS (1)
  1. INFLIXIMAB [Suspect]
     Active Substance: INFLIXIMAB
     Indication: Rheumatoid arthritis
     Route: 042

REACTIONS (9)
  - Death [Fatal]
  - Abscess [Fatal]
  - Lung abscess [Fatal]
  - Lung disorder [Fatal]
  - Malaise [Fatal]
  - Pyrexia [Fatal]
  - Rhinorrhoea [Fatal]
  - Weight decreased [Fatal]
  - Off label use [Fatal]
